FAERS Safety Report 6933848-X (Version None)
Quarter: 2010Q3

REPORT INFORMATION
  Report Type: 
  Country: None (occurrence: None)
  Receive Date: 20100820
  Receipt Date: 20100809
  Transmission Date: 20110219
  Serious: Yes (Hospitalization)
  Sender: FDA-Public Use
  Company Number: US-ELI_LILLY_AND_COMPANY-US201006007343

PATIENT
  Sex: Female

DRUGS (10)
  1. GEMCITABINE HCL [Suspect]
     Indication: PANCREATIC CARCINOMA METASTATIC
     Dosage: 1000 MG/M2, OTHER
     Route: 042
     Dates: start: 20100617, end: 20100617
  2. GEMCITABINE HCL [Suspect]
     Dosage: 1000 MG/M2, OTHER
     Route: 042
     Dates: start: 20100706
  3. PACLITAXEL [Suspect]
     Indication: PANCREATIC CARCINOMA METASTATIC
     Dosage: 125 MG/M2, OTHER
     Route: 042
     Dates: start: 20100617, end: 20100617
  4. PACLITAXEL [Suspect]
     Dosage: 125 MG/M2, OTHER
     Route: 042
     Dates: start: 20100706
  5. PROCHLORPERAZINE [Concomitant]
     Indication: NAUSEA
     Dosage: 10 MG, AS NEEDED
     Route: 048
     Dates: start: 20100617
  6. HYDROMORPHONE [Concomitant]
     Indication: PAIN
     Dosage: 2 MG, AS NEEDED
     Route: 048
  7. FLUTICASONE W/SALMETEROL [Concomitant]
  8. FLUOXETINE [Concomitant]
     Indication: DEPRESSION
     Dosage: 20 MG, UNK
     Route: 048
     Dates: start: 20091201
  9. GLYBURIDE [Concomitant]
     Indication: DIABETES MELLITUS
     Dosage: 2.5 MG, UNK
     Route: 048
     Dates: start: 20091201
  10. PRILOSEC [Concomitant]
     Indication: GASTROOESOPHAGEAL REFLUX DISEASE
     Dosage: 20 MG, UNK
     Route: 048
     Dates: start: 20091201

REACTIONS (1)
  - PLEURAL EFFUSION [None]
